FAERS Safety Report 9858628 (Version 2)
Quarter: 2014Q1

REPORT INFORMATION
  Report Type: Spontaneous
  Country: DK (occurrence: DK)
  Receive Date: 20140131
  Receipt Date: 20140225
  Transmission Date: 20141002
  Serious: No
  Sender: FDA-Public Use
  Company Number: DK-009507513-1401DNK013944

PATIENT
  Age: 54 Year
  Sex: Female

DRUGS (2)
  1. COSOPT [Suspect]
     Dosage: UNK
     Route: 047
  2. COSOPT [Suspect]
     Dosage: UNK
     Route: 047
     Dates: end: 201312

REACTIONS (10)
  - Cataract operation [Unknown]
  - Glaucoma [Unknown]
  - Ocular hyperaemia [Unknown]
  - Madarosis [Unknown]
  - Epistaxis [Unknown]
  - Blister [Recovered/Resolved]
  - Wound [Recovered/Resolved]
  - Pruritus [Recovered/Resolved]
  - Blister [Unknown]
  - Intraocular pressure increased [Unknown]
